FAERS Safety Report 9703777 (Version 6)
Quarter: 2014Q2

REPORT INFORMATION
  Report Type: Report from Study
  Country: LU (occurrence: LU)
  Receive Date: 20131122
  Receipt Date: 20140623
  Transmission Date: 20141212
  Serious: Yes (Hospitalization)
  Sender: FDA-Public Use
  Company Number: LU-US-EMD SERONO, INC.-7250496

PATIENT
  Age: 57 Year
  Sex: Male

DRUGS (4)
  1. REBIF [Suspect]
     Indication: MULTIPLE SCLEROSIS
     Dates: start: 20131002, end: 20140518
  2. REBIF [Suspect]
  3. REBIF [Suspect]
  4. APROVEL [Concomitant]
     Indication: HYPERTENSION

REACTIONS (6)
  - Diverticulitis [Recovering/Resolving]
  - Insomnia [Recovering/Resolving]
  - Asthenia [Unknown]
  - Large intestine polyp [Unknown]
  - Pruritus [Not Recovered/Not Resolved]
  - Fatigue [Recovering/Resolving]
